FAERS Safety Report 4788997-1 (Version None)
Quarter: 2005Q4

REPORT INFORMATION
  Report Type: 
  Country: None (occurrence: None)
  Receive Date: 20051004
  Receipt Date: 20050921
  Transmission Date: 20060501
  Serious: Yes (Other)
  Sender: FDA-Public Use
  Company Number: 2005132601

PATIENT
  Sex: Female

DRUGS (1)
  1. ZITHROMAX [Suspect]
     Indication: BRONCHITIS

REACTIONS (4)
  - AGRAPHIA [None]
  - ARTHROPATHY [None]
  - IMMOBILE [None]
  - INFLAMMATION [None]
